FAERS Safety Report 13514016 (Version 1)
Quarter: 2017Q2

REPORT INFORMATION
  Report Type: Spontaneous
  Country: US (occurrence: US)
  Receive Date: 20170504
  Receipt Date: 20170504
  Transmission Date: 20170830
  Serious: No
  Sender: FDA-Public Use
  Company Number: US-PFIZER INC-2017191088

PATIENT
  Sex: Male

DRUGS (1)
  1. XELJANZ XR [Suspect]
     Active Substance: TOFACITINIB CITRATE
     Dosage: 11 MG, DAILY

REACTIONS (11)
  - Rash [Recovering/Resolving]
  - Condition aggravated [Unknown]
  - Oedema peripheral [Unknown]
  - Fall [Unknown]
  - Musculoskeletal stiffness [Unknown]
  - Joint swelling [Unknown]
  - Myalgia [Unknown]
  - Back pain [Unknown]
  - Arthralgia [Unknown]
  - Paraesthesia [Unknown]
  - Hypoaesthesia [Unknown]
